FAERS Safety Report 10240743 (Version 1)
Quarter: 2014Q2

REPORT INFORMATION
  Report Type: Spontaneous
  Country: FR (occurrence: FR)
  Receive Date: 20140617
  Receipt Date: 20140617
  Transmission Date: 20141212
  Serious: Yes (Hospitalization)
  Sender: FDA-Public Use
  Company Number: FR-ROCHE-1416488

PATIENT
  Age: 39 Year
  Sex: Female
  Weight: 56 kg

DRUGS (6)
  1. APRANAX [Suspect]
     Indication: PRODUCT USED FOR UNKNOWN INDICATION
     Route: 048
     Dates: end: 20131112
  2. METOJECT [Suspect]
     Indication: PRODUCT USED FOR UNKNOWN INDICATION
     Route: 058
     Dates: start: 20130820, end: 20131106
  3. ANTADYS [Suspect]
     Indication: DYSMENORRHOEA
     Route: 048
     Dates: end: 20131020
  4. CURCUMA LONGA [Suspect]
     Indication: VOMITING
     Route: 048
     Dates: start: 201309, end: 20131112
  5. LINSEED OIL [Suspect]
     Indication: PRODUCT USED FOR UNKNOWN INDICATION
     Route: 048
     Dates: start: 201309, end: 201310
  6. SPECIAFOLDINE [Concomitant]
     Route: 065

REACTIONS (2)
  - Hepatocellular injury [Recovered/Resolved]
  - Lymphopenia [None]
